FAERS Safety Report 24301153 (Version 2)
Quarter: 2025Q3

REPORT INFORMATION
  Report Type: Report from Study
  Country: CA (occurrence: CA)
  Receive Date: 20240910
  Receipt Date: 20250811
  Transmission Date: 20251020
  Serious: Yes (Other)
  Sender: TAKEDA
  Company Number: CA-TAKEDA-2024TUS075016

PATIENT
  Sex: Female

DRUGS (3)
  1. VEDOLIZUMAB [Suspect]
     Active Substance: VEDOLIZUMAB
     Indication: Crohn^s disease
  2. VEDOLIZUMAB [Suspect]
     Active Substance: VEDOLIZUMAB
     Indication: Crohn^s disease
     Dosage: 108 MILLIGRAM, Q2WEEKS
     Dates: start: 20240618
  3. PREDNISONE [Concomitant]
     Active Substance: PREDNISONE

REACTIONS (14)
  - Gallbladder polyp [Unknown]
  - Pain [Unknown]
  - Dyschezia [Unknown]
  - Proctalgia [Unknown]
  - Defaecation urgency [Unknown]
  - Incision site erythema [Unknown]
  - Procedural pain [Unknown]
  - Incision site swelling [Unknown]
  - Abdominal pain [Unknown]
  - Dyspnoea [Unknown]
  - Malaise [Unknown]
  - Abdominal distension [Unknown]
  - Headache [Unknown]
  - Constipation [Unknown]
